FAERS Safety Report 4825352-X (Version None)
Quarter: 2005Q4

REPORT INFORMATION
  Report Type: 
  Country: None (occurrence: None)
  Receive Date: 20051111
  Receipt Date: 20050816
  Transmission Date: 20060501
  Serious: Yes (Hospitalization, Other)
  Sender: FDA-Public Use
  Company Number: US-AMGEN-KDL146844

PATIENT
  Sex: Female

DRUGS (2)
  1. ENBREL [Suspect]
     Indication: RHEUMATOID ARTHRITIS
     Route: 058
     Dates: start: 20000601, end: 20050729
  2. METHOTREXATE [Concomitant]
     Dates: end: 20050729

REACTIONS (4)
  - ANOREXIA [None]
  - ASTHENIA [None]
  - INFECTION [None]
  - SARCOIDOSIS [None]
